FAERS Safety Report 21922087 (Version 3)
Quarter: 2023Q1

REPORT INFORMATION
  Report Type: Report from Study
  Country: US (occurrence: US)
  Receive Date: 20230128
  Receipt Date: 20230328
  Transmission Date: 20230418
  Serious: Yes (Other)
  Sender: FDA-Public Use
  Company Number: US-ABBVIE-4284655

PATIENT
  Age: 56 Year
  Sex: Male

DRUGS (2)
  1. HUMIRA [Suspect]
     Active Substance: ADALIMUMAB
     Indication: Rheumatoid arthritis
     Dosage: FORM STRENGTH 40 MILLIGRAM
     Route: 058
     Dates: start: 20220923
  2. HUMIRA [Suspect]
     Active Substance: ADALIMUMAB
     Dosage: ORM STRENGTH 40 MILLIGRAM
     Route: 058

REACTIONS (9)
  - Rotator cuff syndrome [Not Recovered/Not Resolved]
  - Therapeutic product effect decreased [Unknown]
  - Osteoarthritis [Unknown]
  - Joint swelling [Unknown]
  - Liver function test increased [Recovering/Resolving]
  - Limb injury [Unknown]
  - Arthralgia [Unknown]
  - Joint stiffness [Unknown]
  - Joint noise [Unknown]

NARRATIVE: CASE EVENT DATE: 20230201
